APPROVED DRUG PRODUCT: MECLIZINE HYDROCHLORIDE
Active Ingredient: MECLIZINE HYDROCHLORIDE
Strength: 25MG
Dosage Form/Route: TABLET;ORAL
Application: A040659 | Product #002 | TE Code: AA
Applicant: JUBILANT CADISTA PHARMACEUTICALS INC
Approved: Jun 4, 2010 | RLD: No | RS: No | Type: RX